FAERS Safety Report 4611115-7 (Version None)
Quarter: 2005Q1

REPORT INFORMATION
  Report Type: 
  Country: None (occurrence: None)
  Receive Date: 20050315
  Receipt Date: 20050315
  Transmission Date: 20050727
  Serious: Yes (Other)
  Sender: FDA-Public Use
  Company Number: None

PATIENT
  Age: 53 Year
  Sex: Female

DRUGS (1)
  1. TUBERCULIN PPD [Suspect]
     Dosage: INTRADERMALLY, FOREARM
     Dates: start: 20050118

REACTIONS (7)
  - FURUNCLE [None]
  - INJECTION SITE ERYTHEMA [None]
  - INJECTION SITE PRURITUS [None]
  - INJECTION SITE URTICARIA [None]
  - LABORATORY TEST ABNORMAL [None]
  - MEDICATION ERROR [None]
  - TUBERCULIN TEST [None]
